FAERS Safety Report 4517431-1 (Version None)
Quarter: 2004Q4

REPORT INFORMATION
  Report Type: 
  Country: None (occurrence: None)
  Receive Date: 20041022
  Receipt Date: 20040818
  Transmission Date: 20050328
  Serious: Yes (Other)
  Sender: FDA-Public Use
  Company Number: 2004067939

PATIENT
  Sex: Male

DRUGS (1)
  1. RELPAX [Suspect]
     Indication: MIGRAINE
     Dosage: 40 MG

REACTIONS (4)
  - ABDOMINAL PAIN [None]
  - BACK PAIN [None]
  - CHEST PAIN [None]
  - DRUG INEFFECTIVE [None]
